FAERS Safety Report 8577435-9 (Version None)
Quarter: 2012Q3

REPORT INFORMATION
  Report Type: 
  Country: None (occurrence: None)
  Receive Date: 20120807
  Receipt Date: 20120801
  Transmission Date: 20120928
  Serious: Yes (Other)
  Sender: FDA-Public Use
  Company Number: PHHY2012ES066601

PATIENT
  Age: 72 Year
  Sex: Male

DRUGS (5)
  1. DILTIAZEM HYDROCHLORIDE [Interacting]
     Indication: ANGINA PECTORIS
  2. EXELON [Interacting]
     Dosage: 9.5 MG, ONCE PATCH DAILY
     Route: 062
  3. EXELON [Interacting]
     Indication: PARKINSON'S DISEASE
     Dosage: 4.6 MG, ONCE PATCH DAILY
     Route: 062
     Dates: start: 20120401
  4. ATORVASTATIN CALCIUM [Interacting]
  5. OMEPRAZOLE [Suspect]

REACTIONS (3)
  - DRUG INTERACTION [None]
  - HYPOTONIA [None]
  - CONVULSION [None]
